FAERS Safety Report 19928008 (Version 1)
Quarter: 2021Q4

REPORT INFORMATION
  Report Type: Spontaneous
  Country: US (occurrence: US)
  Receive Date: 20211006
  Receipt Date: 20211006
  Transmission Date: 20220303
  Serious: Yes (Disabling)
  Sender: FDA-Public Use
  Company Number: None

PATIENT
  Age: 26 Year
  Sex: Female
  Weight: 73.35 kg

DRUGS (3)
  1. DYSPORT [Suspect]
     Active Substance: ABOBOTULINUMTOXINA
     Indication: Skin cosmetic procedure
     Dates: start: 20210923
  2. PROGESTERONE [Concomitant]
     Active Substance: PROGESTERONE
  3. ARMOUR THYROID [Concomitant]
     Active Substance: THYROID, PORCINE

REACTIONS (7)
  - Myalgia [None]
  - Neuropathy peripheral [None]
  - Dizziness [None]
  - Dyspnoea [None]
  - Paralysis [None]
  - Disturbance in attention [None]
  - Urinary tract infection [None]

NARRATIVE: CASE EVENT DATE: 20210923
